FAERS Safety Report 18816589 (Version 2)
Quarter: 2021Q1

REPORT INFORMATION
  Report Type: Other
  Country: BE (occurrence: BE)
  Receive Date: 20210201
  Receipt Date: 20210222
  Transmission Date: 20210419
  Serious: No
  Sender: FDA-Public Use
  Company Number: BE-ROCHE-2757087

PATIENT
  Age: 38 Year
  Sex: Female

DRUGS (20)
  1. FURADANTINE [Concomitant]
     Active Substance: NITROFURANTOIN
     Indication: VAGINAL INFECTION
     Route: 048
     Dates: start: 20201212, end: 20201215
  2. SOLU?MEDROL [Concomitant]
     Active Substance: METHYLPREDNISOLONE SODIUM SUCCINATE
     Indication: PREMEDICATION
     Dosage: SUBSEQUENT DOSE: 01/OCT/2019, 21/APR/2020, 02/NOV/2020
     Route: 042
     Dates: start: 20190917, end: 20190917
  3. CETIRIZINE [Concomitant]
     Active Substance: CETIRIZINE HYDROCHLORIDE
     Indication: PREMEDICATION
     Dosage: SUBSEQUENT DOSE: 01/OCT/2019, 21/APR/2020, 02/NOV/2020
     Route: 048
     Dates: start: 20190917
  4. CETIRIZINE [Concomitant]
     Active Substance: CETIRIZINE HYDROCHLORIDE
     Dosage: PILL?AS REQUIRED
     Route: 048
     Dates: start: 20190918, end: 20190925
  5. OCRELIZUMAB. [Suspect]
     Active Substance: OCRELIZUMAB
     Indication: MULTIPLE SCLEROSIS
     Dosage: 300 MG/ 250 ML?VISIT 2
     Route: 042
     Dates: start: 20190917, end: 20190917
  6. BETMIGA [Concomitant]
     Active Substance: MIRABEGRON
     Route: 048
     Dates: start: 201310
  7. FURADANTINE [Concomitant]
     Active Substance: NITROFURANTOIN
     Indication: NAUSEA
  8. GYNO DAKTARIN [Concomitant]
     Indication: VAGINAL INFECTION
     Route: 067
     Dates: start: 20201219, end: 20201219
  9. FLUOXETINE [Concomitant]
     Active Substance: FLUOXETINE HYDROCHLORIDE
     Indication: ANXIETY
     Route: 048
     Dates: start: 201806
  10. TRAZODONE [Concomitant]
     Active Substance: TRAZODONE HYDROCHLORIDE
     Indication: ANXIETY
     Route: 048
     Dates: start: 201806
  11. OCRELIZUMAB. [Suspect]
     Active Substance: OCRELIZUMAB
     Dosage: DOSE: 600 MG/ 500 ML?VISIT 4
     Route: 042
     Dates: start: 20200421, end: 20200421
  12. OCRELIZUMAB. [Suspect]
     Active Substance: OCRELIZUMAB
     Dosage: DOSE: 600 MG/ 500 ML?VISIT 5
     Route: 042
     Dates: start: 20201102, end: 20201102
  13. BISOPROLOL [Concomitant]
     Active Substance: BISOPROLOL
     Indication: MIGRAINE
     Route: 048
     Dates: start: 201501
  14. DAFALGAN [Concomitant]
     Active Substance: ACETAMINOPHEN
     Indication: URINARY TRACT INFECTION
     Route: 048
     Dates: start: 20190918, end: 20190925
  15. CIPROFLOXACINE [Concomitant]
     Active Substance: CIPROFLOXACIN
     Indication: URINARY TRACT INFECTION
     Route: 048
     Dates: start: 20201212, end: 20201217
  16. ITRACONAZOLE. [Concomitant]
     Active Substance: ITRACONAZOLE
     Indication: VAGINAL INFECTION
     Route: 048
     Dates: start: 20201219, end: 20201220
  17. OCRELIZUMAB. [Suspect]
     Active Substance: OCRELIZUMAB
     Dosage: 300 MG/ 250 ML?VISIT 3
     Route: 042
     Dates: start: 20191001, end: 20191001
  18. SEDISTRESS [Concomitant]
     Indication: ANXIETY
     Route: 048
     Dates: start: 201806
  19. AMOXICLAV [Concomitant]
     Active Substance: AMOXICILLIN\CLAVULANATE POTASSIUM
     Indication: URINARY TRACT INFECTION
     Route: 048
     Dates: start: 20201216, end: 20201220
  20. DAFALGAN [Concomitant]
     Active Substance: ACETAMINOPHEN
     Indication: PREMEDICATION
     Dosage: SUBSEQUENT DOSE: 01/OCT/2019, 21/APR/2020, 02/NOV/2020
     Route: 048
     Dates: start: 20190917

REACTIONS (2)
  - Fatigue [Recovering/Resolving]
  - Epstein-Barr virus infection [Recovered/Resolved]

NARRATIVE: CASE EVENT DATE: 20201001
